FAERS Safety Report 9352698 (Version 1)
Quarter: 2013Q2

REPORT INFORMATION
  Report Type: Spontaneous
  Country: DE (occurrence: DE)
  Receive Date: 20130618
  Receipt Date: 20130618
  Transmission Date: 20140414
  Serious: Yes (Other)
  Sender: FDA-Public Use
  Company Number: DE-009507513-1306DEU005122

PATIENT
  Age: 67 Year
  Sex: Female

DRUGS (6)
  1. COSOPT [Suspect]
     Indication: GLAUCOMA
     Dosage: UNK
     Route: 047
     Dates: start: 2010
  2. LUMIGAN [Concomitant]
  3. RAMIPRIL [Concomitant]
  4. AMLODIPINE [Concomitant]
  5. DEXAMETHASONE [Concomitant]
  6. TILIDIN [Concomitant]

REACTIONS (1)
  - Small cell lung cancer metastatic [Not Recovered/Not Resolved]
